FAERS Safety Report 8348037-4 (Version None)
Quarter: 2012Q2

REPORT INFORMATION
  Report Type: 
  Country: None (occurrence: None)
  Receive Date: 20120509
  Receipt Date: 20120501
  Transmission Date: 20120825
  Serious: Yes (Other)
  Sender: FDA-Public Use
  Company Number: US-JNJFOC-20120503754

PATIENT

DRUGS (2)
  1. XARELTO [Suspect]
     Indication: KNEE OPERATION
     Route: 048
     Dates: start: 20120101, end: 20120101
  2. NSAIDS [Concomitant]
     Indication: PAIN

REACTIONS (2)
  - HAEMORRHAGE [None]
  - SKIN DISCOLOURATION [None]
